FAERS Safety Report 6253677-2 (Version None)
Quarter: 2009Q3

REPORT INFORMATION
  Report Type: 
  Country: None (occurrence: None)
  Receive Date: 20090701
  Receipt Date: 20090624
  Transmission Date: 20100115
  Serious: Yes (Hospitalization, Other)
  Sender: FDA-Public Use
  Company Number: IE-ABBOTT-09P-229-0577404-00

PATIENT
  Sex: Female

DRUGS (1)
  1. HUMIRA [Suspect]
     Indication: CROHN'S DISEASE
     Dosage: 80MG/40MG, ALTERNATING WEEKS
     Dates: start: 20090519

REACTIONS (4)
  - ANXIETY [None]
  - CHEST DISCOMFORT [None]
  - FATIGUE [None]
  - HOSPITALISATION [None]
